FAERS Safety Report 9253255 (Version 1)
Quarter: 2013Q2

REPORT INFORMATION
  Report Type: Spontaneous
  Country: US (occurrence: US)
  Receive Date: 20130424
  Receipt Date: 20130424
  Transmission Date: 20140414
  Serious: Yes (Other)
  Sender: FDA-Public Use
  Company Number: US-BIOMARINAP-US-2013-100685

PATIENT
  Age: 40 Year
  Sex: Female
  Weight: 48.3 kg

DRUGS (5)
  1. ALDURAZYME [Suspect]
     Indication: MUCOPOLYSACCHARIDOSIS I
     Dosage: .60 MG/KG, UNK
     Route: 042
  2. WARFARIN [Concomitant]
     Indication: PRODUCT USED FOR UNKNOWN INDICATION
  3. AZOPT [Concomitant]
     Indication: PRODUCT USED FOR UNKNOWN INDICATION
  4. PREDNISONE [Concomitant]
     Indication: PRODUCT USED FOR UNKNOWN INDICATION
  5. TIMOLOL [Concomitant]
     Indication: PRODUCT USED FOR UNKNOWN INDICATION

REACTIONS (4)
  - Corneal opacity [Unknown]
  - Macular oedema [Unknown]
  - Retinal oedema [Unknown]
  - Musculoskeletal stiffness [Unknown]
